FAERS Safety Report 6276200-5 (Version None)
Quarter: 2009Q3

REPORT INFORMATION
  Report Type: 
  Country: None (occurrence: None)
  Receive Date: 20090722
  Receipt Date: 20090709
  Transmission Date: 20100115
  Serious: Yes (Hospitalization)
  Sender: FDA-Public Use
  Company Number: NL-RANBAXY-2009RR-25641

PATIENT
  Age: 51 Year
  Sex: Female

DRUGS (4)
  1. PARACETAMOL [Suspect]
     Indication: ABDOMINAL PAIN
     Dosage: 2 G, QD
     Route: 048
  2. ALENDRONIC ACID [Concomitant]
  3. CALCIUM CARBONATE [Concomitant]
  4. TEMAZEPAM [Concomitant]

REACTIONS (2)
  - HEPATIC FAILURE [None]
  - METABOLIC ACIDOSIS [None]
